FAERS Safety Report 9204902 (Version 2)
Quarter: 2013Q2

REPORT INFORMATION
  Report Type: Spontaneous
  Country: US (occurrence: None)
  Receive Date: 20120709
  Receipt Date: 20121107
  Transmission Date: 20140414
  Serious: Yes (Other)
  Sender: FDA-Public Use
  Company Number: 2012HGS-003460

PATIENT
  Age: 44 Year
  Sex: Female
  Weight: 52.16 kg

DRUGS (14)
  1. BENLYSTA [Suspect]
     Indication: SYSTEMIC LUPUS ERYTHEMATOSUS
     Dosage: INTRAVENOUS DRIP
     Route: 041
     Dates: start: 20120402
  2. PLAQUENIL (HYDROXYCHLOROQUINE SULFATE) (HYDROCHLOROQUINE SULFATE) [Concomitant]
  3. IMURAN (AZATHIOPRINE) (AZATHIOPRINE) [Concomitant]
  4. TOPAMAX (TOPIRAMATE) (TOPIRAMATE) [Concomitant]
  5. WELLBUTRIN XR (BUPROPION HYDROCHLORIDE) (BUPROPION HYDROCHLORIDE) [Concomitant]
  6. XANAX XR (ALPRAZOLAM (ALPRAZOLAM) [Concomitant]
  7. B COMPLEX (NICOTINAM, W/PYROXI, HCL/ RIBPFL./THIAM. HCL) (PYRIDOXINE HYDROCHLORIDE, THIAMINE HYDROCHLORIDE, RIBOFLAVIN, NICOTINAMIDE) [Concomitant]
  8. VITAMIN D3 (COLECALCIFEROL) (COLECALCIFEROL) [Concomitant]
  9. FISH OIL (FISH OIL) (FISH OIL) [Concomitant]
  10. CALCIUM (CALCIUM) (CALCIUM) [Concomitant]
  11. FENTANYL PATCH (FENTANYL) (FENTANYL) [Concomitant]
  12. FIORICET (AXOTAL/ 00727001/)(CAFFEINE, BUTALBITAL, PARACETAMOL) [Concomitant]
  13. PROGESTERONE (PROGESTERONE) (PROGESTERONE) [Concomitant]
  14. NORCO (VICODIN) (PARACETAMOL, HYDROCODONE BITARTRATE) [Concomitant]

REACTIONS (7)
  - Fatigue [None]
  - Flushing [None]
  - Abdominal pain upper [None]
  - Diarrhoea [None]
  - Nausea [None]
  - Hypotension [None]
  - Abdominal pain [None]
